FAERS Safety Report 14485782 (Version 2)
Quarter: 2018Q1

REPORT INFORMATION
  Report Type: Spontaneous
  Country: US (occurrence: US)
  Receive Date: 20180205
  Receipt Date: 20180226
  Transmission Date: 20180509
  Serious: Yes (Hospitalization)
  Sender: FDA-Public Use
  Company Number: US-DSJP-DSU-2017-141130

PATIENT

DRUGS (2)
  1. BENICAR [Suspect]
     Active Substance: OLMESARTAN MEDOXOMIL
     Indication: CHRONIC FATIGUE SYNDROME
  2. BENICAR [Suspect]
     Active Substance: OLMESARTAN MEDOXOMIL
     Indication: LYME DISEASE
     Dosage: 40 MG, QID
     Dates: start: 20060101, end: 20091231

REACTIONS (10)
  - Off label use [Unknown]
  - Cholelithiasis [Unknown]
  - Liver function test increased [Unknown]
  - Hypotension [Recovered/Resolved]
  - Hiatus hernia [Unknown]
  - Sprue-like enteropathy [Recovering/Resolving]
  - Acute kidney injury [Recovered/Resolved]
  - Gastrooesophageal reflux disease [Unknown]
  - Product use issue [Unknown]
  - Occult blood positive [Unknown]

NARRATIVE: CASE EVENT DATE: 20060101
